FAERS Safety Report 20453593 (Version 4)
Quarter: 2022Q2

REPORT INFORMATION
  Report Type: Report from Study
  Country: EG (occurrence: EG)
  Receive Date: 20220210
  Receipt Date: 20220524
  Transmission Date: 20220721
  Serious: Yes (Death, Hospitalization)
  Sender: FDA-Public Use
  Company Number: EG-NOVOPROD-887973

PATIENT
  Age: 52 Year
  Sex: Female

DRUGS (4)
  1. AMARYL [Concomitant]
     Active Substance: GLIMEPIRIDE
     Indication: Type 2 diabetes mellitus
     Dosage: UNK
     Route: 065
  2. SUGARLO PLUS [Concomitant]
     Indication: Product used for unknown indication
     Dosage: UNK
     Route: 065
  3. TRESIBA [Suspect]
     Active Substance: INSULIN DEGLUDEC
     Dosage: 25 IU
     Route: 058
     Dates: end: 202111
  4. TRESIBA [Suspect]
     Active Substance: INSULIN DEGLUDEC
     Indication: Type 2 diabetes mellitus
     Dosage: 20 IU
     Route: 058
     Dates: start: 20210906

REACTIONS (5)
  - Acute kidney injury [Fatal]
  - Device issue [Fatal]
  - Hyperglycaemia [Fatal]
  - Product dose omission issue [Fatal]
  - Drug ineffective [Fatal]
